FAERS Safety Report 8969593 (Version 2)
Quarter: 2012Q4

REPORT INFORMATION
  Report Type: Spontaneous
  Country: US (occurrence: None)
  Receive Date: 20121210
  Receipt Date: 20121218
  Transmission Date: 20130627
  Serious: Yes (Death, Hospitalization)
  Sender: FDA-Public Use
  Company Number: AUR-APL-2012-05145

PATIENT
  Age: 63 Year
  Sex: Female
  Weight: 113 kg

DRUGS (4)
  1. CLINDAMYCIN [Suspect]
     Indication: BACTERIAL INFECTION DUE TO STAPHYLOCOCCUS AUREUS
  2. LEVOTHYROXINE (LEVOTHYROXINE) [Concomitant]
  3. ATORVASTATIN (ATORVASTATIN) [Concomitant]
  4. ACETAMINOPHEN-HYDROCODONE (PROCET /01554201/) [Concomitant]

REACTIONS (7)
  - Renal failure acute [None]
  - Pancreatitis [None]
  - Hepatic failure [None]
  - Coagulopathy [None]
  - Respiratory failure [None]
  - Hypotension [None]
  - Drug reaction with eosinophilia and systemic symptoms [None]
